FAERS Safety Report 8438210-9 (Version None)
Quarter: 2012Q2

REPORT INFORMATION
  Report Type: 
  Country: None (occurrence: None)
  Receive Date: 20120614
  Receipt Date: 20120601
  Transmission Date: 20120825
  Serious: Yes (Hospitalization, Other)
  Sender: FDA-Public Use
  Company Number: CA-MYLANLABS-2012S1010973

PATIENT
  Age: 64 Year
  Sex: Female

DRUGS (2)
  1. HYDROCHLOROTHIAZIDE [Suspect]
  2. NSAID'S [Concomitant]
     Indication: PAIN
     Dosage: THREE DIFFERENT DRUGS

REACTIONS (6)
  - HYPOTENSION [None]
  - NON-CARDIOGENIC PULMONARY OEDEMA [None]
  - MULTI-ORGAN FAILURE [None]
  - ACUTE RESPIRATORY FAILURE [None]
  - DISSEMINATED INTRAVASCULAR COAGULATION [None]
  - KLEBSIELLA INFECTION [None]
